FAERS Safety Report 11282561 (Version 1)
Quarter: 2015Q3

REPORT INFORMATION
  Report Type: Spontaneous
  Country: US (occurrence: None)
  Receive Date: 20150716
  Receipt Date: 20150716
  Transmission Date: 20151125
  Serious: Yes (Hospitalization)
  Sender: FDA-Public Use
  Company Number: None

PATIENT
  Age: 46 Year
  Sex: Male
  Weight: 92 kg

DRUGS (8)
  1. QUETIAPINE XR [Concomitant]
     Active Substance: QUETIAPINE
  2. VORTIOXETINE [Suspect]
     Active Substance: VORTIOXETINE
     Indication: BIPOLAR DISORDER
     Dosage: 1 PILL QD ORAL
     Route: 048
  3. PANTOPRAZOLE [Concomitant]
     Active Substance: PANTOPRAZOLE SODIUM
  4. MULTIVITAMIN [Concomitant]
     Active Substance: VITAMINS
  5. TRAZODONE [Concomitant]
     Active Substance: TRAZODONE HYDROCHLORIDE
  6. PRAVASTATIN [Concomitant]
     Active Substance: PRAVASTATIN\PRAVASTATIN SODIUM
  7. LISINOPRIL. [Concomitant]
     Active Substance: LISINOPRIL
  8. VORTIOXETINE [Suspect]
     Active Substance: VORTIOXETINE
     Indication: POST-TRAUMATIC STRESS DISORDER
     Dosage: 1 PILL QD ORAL
     Route: 048

REACTIONS (10)
  - Abdominal pain [None]
  - Aspartate aminotransferase increased [None]
  - Vomiting [None]
  - Dehydration [None]
  - Therapy change [None]
  - Hyponatraemia [None]
  - Hypovolaemia [None]
  - Nausea [None]
  - Inappropriate antidiuretic hormone secretion [None]
  - Alanine aminotransferase increased [None]

NARRATIVE: CASE EVENT DATE: 20150708
